FAERS Safety Report 7664612-4 (Version None)
Quarter: 2011Q3

REPORT INFORMATION
  Report Type: 
  Country: None (occurrence: None)
  Receive Date: 20110806
  Receipt Date: 20110105
  Transmission Date: 20111222
  Serious: No
  Sender: FDA-Public Use
  Company Number: US-ABBOTT-11P-163-0695622-00

PATIENT
  Sex: Female
  Weight: 78.542 kg

DRUGS (8)
  1. NIASPAN [Suspect]
  2. VITAMIN TAB [Concomitant]
     Indication: PRODUCT USED FOR UNKNOWN INDICATION
  3. ISOSORBIDE DINITRATE [Concomitant]
     Indication: ISCHAEMIC HEART DISEASE PROPHYLAXIS
  4. MINERAL TAB [Concomitant]
     Indication: PRODUCT USED FOR UNKNOWN INDICATION
  5. NIASPAN [Suspect]
     Indication: BLOOD CHOLESTEROL INCREASED
     Dosage: EVERY NIGHT
  6. NIASPAN [Suspect]
     Dosage: EVERY NIGHT
     Dates: start: 20101001
  7. NIASPAN [Suspect]
     Indication: BLOOD CHOLESTEROL INCREASED
     Dosage: EVERY NIGHT
     Dates: start: 20101201
  8. ATENOLOL [Concomitant]
     Indication: HYPERTENSION

REACTIONS (3)
  - NAUSEA [None]
  - FLATULENCE [None]
  - PAIN [None]
